FAERS Safety Report 4366637-3 (Version None)
Quarter: 2004Q2

REPORT INFORMATION
  Report Type: 
  Country: None (occurrence: None)
  Receive Date: 20040524
  Receipt Date: 20040510
  Transmission Date: 20050107
  Serious: Yes (Death, Hospitalization)
  Sender: FDA-Public Use
  Company Number: 04P-150-0252872-00

PATIENT
  Age: 66 Year
  Sex: Male

DRUGS (9)
  1. HUMIRA [Suspect]
     Indication: RHEUMATOID ARTHRITIS
     Dosage: 40 MG, 1 IN 2 WK, SUBCUTANEOUS
     Route: 058
     Dates: start: 20031215, end: 20040209
  2. METHOTREXATE [Suspect]
     Dosage: 15 MG, 1 IN 1 WK
     Dates: start: 19990101, end: 20040209
  3. PREDNISOLONE [Concomitant]
  4. SULFSALAZINE [Concomitant]
  5. NAPROXEN [Concomitant]
  6. FOLACIN [Concomitant]
  7. CALCIPOS-D [Concomitant]
  8. STEROID ANTIBACTERIALS [Concomitant]
  9. PREDNISOLONE [Concomitant]

REACTIONS (25)
  - ALVEOLITIS [None]
  - ANXIETY [None]
  - BRONCHOPNEUMONIA [None]
  - CANDIDIASIS [None]
  - CATHETER SITE INFECTION [None]
  - CHEST PAIN [None]
  - COUGH [None]
  - DIVERTICULITIS [None]
  - DRUG TOXICITY [None]
  - DYSPNOEA [None]
  - ENTEROCOCCAL INFECTION [None]
  - FATIGUE [None]
  - GENERAL PHYSICAL HEALTH DETERIORATION [None]
  - HAEMORRHAGIC DIATHESIS [None]
  - HYPOTONIA [None]
  - INCREASED BRONCHIAL SECRETION [None]
  - KLEBSIELLA INFECTION [None]
  - PNEUMOCYSTIS CARINII INFECTION [None]
  - PNEUMONITIS [None]
  - POLYNEUROPATHY [None]
  - PULMONARY FIBROSIS [None]
  - PYREXIA [None]
  - RESPIRATORY FAILURE [None]
  - RESPIRATORY TRACT INFECTION [None]
  - URINARY TRACT INFECTION BACTERIAL [None]
